FAERS Safety Report 7597047-3 (Version None)
Quarter: 2011Q3

REPORT INFORMATION
  Report Type: 
  Country: None (occurrence: None)
  Receive Date: 20110708
  Receipt Date: 20110628
  Transmission Date: 20111222
  Serious: Yes (Other)
  Sender: FDA-Public Use
  Company Number: CA-PFIZER INC-2011144931

PATIENT
  Sex: Female

DRUGS (4)
  1. NIZATIDINE [Concomitant]
     Indication: ABDOMINAL PAIN UPPER
     Dosage: 1 TABLET, 2X/DAY
  2. SYNTHROID [Concomitant]
     Indication: BLOOD CHOLESTEROL
     Dosage: 0.5 TABLET, 1X/DAY
     Dates: start: 20100101
  3. XALATAN [Suspect]
     Dosage: 1 GTT IN BOTH EYES, 1X/DAY BEFORE BEDTIME
     Route: 047
     Dates: start: 20110627
  4. XALATAN [Suspect]
     Indication: GLAUCOMA
     Dosage: 1 GTT IN BOTH EYES, 1X/DAY BEFORE BEDTIME
     Route: 047
     Dates: start: 20090101

REACTIONS (9)
  - LACRIMATION INCREASED [None]
  - TINNITUS [None]
  - MALAISE [None]
  - APHASIA [None]
  - EYE PRURITUS [None]
  - DEAFNESS [None]
  - FEELING ABNORMAL [None]
  - GAIT DISTURBANCE [None]
  - EAR INFECTION [None]
